FAERS Safety Report 6410239-1 (Version None)
Quarter: 2009Q4

REPORT INFORMATION
  Report Type: 
  Country: None (occurrence: None)
  Receive Date: 20091022
  Receipt Date: 20091019
  Transmission Date: 20100525
  Serious: Yes (Death, Other)
  Sender: FDA-Public Use
  Company Number: PHHY2009AT45058

PATIENT
  Sex: Male

DRUGS (10)
  1. AFINITOR [Suspect]
     Indication: METASTATIC RENAL CELL CARCINOMA
     Dosage: 10 MG/DAY
     Dates: start: 20090831
  2. AFINITOR [Suspect]
     Dosage: 5 MG/DAY
     Dates: start: 20090925
  3. TORISEL [Suspect]
     Dosage: UNK
     Dates: start: 20090119, end: 20090824
  4. SUTENT [Suspect]
     Dosage: UNK
     Dates: start: 20070801, end: 20090101
  5. NEXAVAR [Suspect]
     Dosage: UNK
     Dates: start: 20070601, end: 20070801
  6. ZOMETA [Concomitant]
     Dosage: 4 MG EVERY 4 WEEKS
  7. HYPREN [Concomitant]
     Indication: HYPERTENSION
     Dosage: 1 CAPSULE IN MORNING
     Route: 048
  8. DOXAZOSIN MESYLATE [Concomitant]
     Indication: HYPERTENSION
     Dosage: 1/2 DF OF 2 MG IN NIGHT
     Route: 048
  9. ALLOPURINOL [Concomitant]
     Indication: HYPERURICAEMIA
     Dosage: 300 MG IN MORNING
     Route: 048
  10. MEXALEN [Concomitant]
     Indication: PAIN
     Dosage: 500 MG IN MORNING AND IN NIGHT
     Route: 048

REACTIONS (15)
  - ANURIA [None]
  - ARRHYTHMIA [None]
  - ASCITES [None]
  - BLOOD CREATININE INCREASED [None]
  - BRADYCARDIA [None]
  - CARDIAC ARREST [None]
  - DECREASED APPETITE [None]
  - DYSPNOEA [None]
  - FATIGUE [None]
  - HYPOTENSION [None]
  - MYOCARDIAL INFARCTION [None]
  - PERICARDIAL EFFUSION [None]
  - STOMATITIS [None]
  - TRIGEMINAL NEURALGIA [None]
  - TROPONIN T INCREASED [None]
